FAERS Safety Report 10977716 (Version 1)
Quarter: 2015Q2

REPORT INFORMATION
  Report Type: Spontaneous
  Country: US (occurrence: None)
  Receive Date: 20150401
  Receipt Date: 20150401
  Transmission Date: 20150821
  Serious: Yes (Hospitalization)
  Sender: FDA-Public Use
  Company Number: None

PATIENT
  Age: 65 Year
  Sex: Male
  Weight: 99.79 kg

DRUGS (4)
  1. LEVOFLOXACIN. [Suspect]
     Active Substance: LEVOFLOXACIN
     Indication: DRUG THERAPY
     Dosage: 1 PILL
     Route: 048
     Dates: start: 20130110, end: 20130117
  2. FLUTICASONE PROPIONATE. [Concomitant]
     Active Substance: FLUTICASONE PROPIONATE
  3. VITAMIN D3 [Concomitant]
     Active Substance: CHOLECALCIFEROL
  4. ALLERTEC [Concomitant]

REACTIONS (4)
  - Hypoaesthesia [None]
  - Carpal tunnel syndrome [None]
  - Activities of daily living impaired [None]
  - Muscular weakness [None]

NARRATIVE: CASE EVENT DATE: 20130201
